FAERS Safety Report 7892783-3 (Version None)
Quarter: 2011Q4

REPORT INFORMATION
  Report Type: 
  Country: None (occurrence: None)
  Receive Date: 20111104
  Receipt Date: 20111031
  Transmission Date: 20120403
  Serious: Yes (Death)
  Sender: FDA-Public Use
  Company Number: JP-PFIZER INC-2011260576

PATIENT
  Age: 65 Year
  Sex: Male

DRUGS (1)
  1. SULBACTAM SODIUM AND AMPICILLIN SODIUM [Suspect]
     Indication: PNEUMONIA
     Dosage: UNK

REACTIONS (2)
  - SHOCK [None]
  - CLOSTRIDIAL INFECTION [None]
